FAERS Safety Report 16022090 (Version 2)
Quarter: 2019Q1

REPORT INFORMATION
  Report Type: Report from Study
  Country: US (occurrence: US)
  Receive Date: 20190301
  Receipt Date: 20190313
  Transmission Date: 20190418
  Serious: Yes (Other)
  Sender: FDA-Public Use
  Company Number: PHEH2019US008872

PATIENT
  Age: 57 Year
  Sex: Female
  Weight: 83.4 kg

DRUGS (1)
  1. GILENYA [Suspect]
     Active Substance: FINGOLIMOD HYDROCHLORIDE
     Indication: MULTIPLE SCLEROSIS
     Dosage: 0.5 MG, QD
     Route: 048
     Dates: start: 20180228, end: 20190201

REACTIONS (3)
  - Leukopenia [Unknown]
  - Liver function test increased [Unknown]
  - Headache [Unknown]

NARRATIVE: CASE EVENT DATE: 20180810
